FAERS Safety Report 9775545 (Version 2)
Quarter: 2013Q4

REPORT INFORMATION
  Report Type: Spontaneous
  Country: JP (occurrence: JP)
  Receive Date: 20131220
  Receipt Date: 20131220
  Transmission Date: 20140711
  Serious: Yes (Death, Other)
  Sender: FDA-Public Use
  Company Number: JP-OTSUKA-02100-JPN-04-0134

PATIENT
  Age: 65 Year
  Sex: Female

DRUGS (2)
  1. PLETAAL [Suspect]
     Indication: LACUNAR INFARCTION
     Dosage: 100 MG, BID
     Route: 048
     Dates: start: 20040120, end: 2004
  2. TOUGHMAC E [Concomitant]
     Route: 048

REACTIONS (4)
  - Renal failure acute [Fatal]
  - Cerebral infarction [Unknown]
  - Constipation [Unknown]
  - Decreased appetite [Unknown]
